FAERS Safety Report 13003396 (Version 1)
Quarter: 2016Q4

REPORT INFORMATION
  Report Type: Spontaneous
  Country: BR (occurrence: BR)
  Receive Date: 20161206
  Receipt Date: 20161206
  Transmission Date: 20170207
  Serious: Yes (Hospitalization, Other)
  Sender: FDA-Public Use
  Company Number: BR-GLAXOSMITHKLINE-BR2016GSK178509

PATIENT
  Age: 2 Year
  Sex: Female
  Weight: 14.5 kg

DRUGS (2)
  1. SERETIDE [Suspect]
     Active Substance: FLUTICASONE PROPIONATE\SALMETEROL XINAFOATE
     Indication: INFECTION PROPHYLAXIS
     Dosage: 2 PUFF(S), BID
     Dates: start: 2014
  2. OMEPRAZOLE. [Concomitant]
     Active Substance: OMEPRAZOLE
     Dosage: 1 UNK, QD
     Dates: start: 2015

REACTIONS (16)
  - Pain [Unknown]
  - Headache [Unknown]
  - Pyrexia [Not Recovered/Not Resolved]
  - Sinusitis [Unknown]
  - Product use issue [Recovered/Resolved]
  - Tracheostomy malfunction [Not Recovered/Not Resolved]
  - Pharyngitis [Recovered/Resolved]
  - Therapeutic response unexpected [Unknown]
  - Pharyngeal inflammation [Unknown]
  - Weight decreased [Unknown]
  - Tracheostomy tube removal [Unknown]
  - Viral infection [Unknown]
  - Pneumonia [Unknown]
  - Oropharyngeal pain [Unknown]
  - Ear infection [Unknown]
  - Ill-defined disorder [Not Recovered/Not Resolved]

NARRATIVE: CASE EVENT DATE: 20150612
